FAERS Safety Report 19202424 (Version 3)
Quarter: 2021Q2

REPORT INFORMATION
  Report Type: Spontaneous
  Country: US (occurrence: US)
  Receive Date: 20210502
  Receipt Date: 20210629
  Transmission Date: 20210717
  Serious: Yes (Other)
  Sender: FDA-Public Use
  Company Number: NVSC2021US093453

PATIENT
  Sex: Male

DRUGS (1)
  1. PROMACTA [Suspect]
     Active Substance: ELTROMBOPAG OLAMINE
     Indication: APLASTIC ANAEMIA
     Dosage: 25 MG, QD
     Route: 048
     Dates: start: 20191018

REACTIONS (6)
  - Arthralgia [Unknown]
  - Neutropenia [Unknown]
  - Paroxysmal nocturnal haemoglobinuria [Unknown]
  - Insomnia [Unknown]
  - Haemolysis [Unknown]
  - Platelet count decreased [Unknown]
